FAERS Safety Report 17741271 (Version 3)
Quarter: 2020Q2

REPORT INFORMATION
  Report Type: Report from Study
  Country: US (occurrence: US)
  Receive Date: 20200504
  Receipt Date: 20200626
  Transmission Date: 20200714
  Serious: Yes (Other)
  Sender: FDA-Public Use
  Company Number: NVSC2020US117600

PATIENT
  Sex: Female

DRUGS (1)
  1. PIQRAY [Suspect]
     Active Substance: ALPELISIB
     Indication: PRODUCT USED FOR UNKNOWN INDICATION
     Dosage: UNK
     Route: 048

REACTIONS (6)
  - Decreased appetite [Unknown]
  - Fatigue [Unknown]
  - Blood glucose increased [Not Recovered/Not Resolved]
  - Faeces soft [Unknown]
  - Diabetes mellitus [Unknown]
  - Diarrhoea [Unknown]
